FAERS Safety Report 8514743-1 (Version None)
Quarter: 2012Q3

REPORT INFORMATION
  Report Type: 
  Country: None (occurrence: None)
  Receive Date: 20120717
  Receipt Date: 20120711
  Transmission Date: 20120928
  Serious: Yes (Hospitalization)
  Sender: FDA-Public Use
  Company Number: US-BAYER-2010-002085

PATIENT
  Age: 30 Year
  Sex: Female

DRUGS (8)
  1. YASMIN [Suspect]
     Indication: ORAL CONTRACEPTION
     Dosage: UNK
     Dates: start: 20080101
  2. DEMEROL [Concomitant]
  3. VISTARIL [Concomitant]
  4. LEVORA 0.15/30-21 [Concomitant]
     Indication: CONTRACEPTION
  5. ANALGESICS [Concomitant]
     Indication: PAIN
     Dosage: 2 PILLS EVERY 4-6 HOURS
  6. BENTYL [Concomitant]
     Indication: PAIN
     Dosage: 10 MG, UNK
  7. TORADOL [Concomitant]
  8. YAZ [Suspect]
     Indication: ORAL CONTRACEPTION
     Dosage: UNK
     Route: 048
     Dates: start: 20080101

REACTIONS (3)
  - GALLBLADDER INJURY [None]
  - CHOLECYSTITIS CHRONIC [None]
  - GALLBLADDER DISORDER [None]
